FAERS Safety Report 8953381 (Version 5)
Quarter: 2020Q3

REPORT INFORMATION
  Report Type: Spontaneous
  Country: US (occurrence: US)
  Receive Date: 20121206
  Receipt Date: 20200924
  Transmission Date: 20201103
  Serious: Yes (Hospitalization, Other)
  Sender: FDA-Public Use
  Company Number: US-COVIDIEN/TYCO HEALTHCARE/MALLINCKRODT-T201204218

PATIENT
  Age: 40 Year
  Sex: Male

DRUGS (8)
  1. FENTANYL CITRATE. [Suspect]
     Active Substance: FENTANYL CITRATE
     Indication: CANCER PAIN
     Dosage: 1200 MCG EVERY 4 HOURS
     Route: 065
  2. MORPHINE [Concomitant]
     Active Substance: MORPHINE
     Indication: PAIN
     Dosage: 100 MILLIGRAM, BID
     Route: 048
  3. MS CONTIN [Concomitant]
     Active Substance: MORPHINE SULFATE
     Indication: PAIN
     Dosage: UNK
     Route: 065
  4. DIAZEPAM. [Concomitant]
     Active Substance: DIAZEPAM
     Indication: MUSCLE SPASMS
     Dosage: 20 MILLIGRAM, TID
     Route: 048
  5. VALIUM [Concomitant]
     Active Substance: DIAZEPAM
     Indication: MUSCLE SPASMS
     Dosage: UNK
     Route: 065
  6. FENTANYL CITRATE. [Suspect]
     Active Substance: FENTANYL CITRATE
     Indication: CANCER PAIN
     Dosage: 400 MCG Q 4?6 HRS
     Route: 065
  7. HYDROMORPHONE [Concomitant]
     Active Substance: HYDROMORPHONE
     Indication: PAIN
     Dosage: 16 MILLIGRAM, Q6H
     Route: 048
  8. FENTANYL CITRATE. [Suspect]
     Active Substance: FENTANYL CITRATE
     Indication: CANCER PAIN
     Dosage: 800 MCG Q 4?6 HRS
     Route: 065

REACTIONS (14)
  - Gait inability [Unknown]
  - Hypertension [Unknown]
  - Deafness [Unknown]
  - Brain oedema [Unknown]
  - Anxiety [Unknown]
  - Sensory loss [Unknown]
  - Muscle spasms [Unknown]
  - Drug withdrawal syndrome [Recovered/Resolved]
  - Haematemesis [Recovering/Resolving]
  - Cardiac failure [Unknown]
  - Pallor [Recovering/Resolving]
  - Gastrointestinal haemorrhage [Recovering/Resolving]
  - Illness [Unknown]
  - Myocardial infarction [Recovered/Resolved]

NARRATIVE: CASE EVENT DATE: 201211
